FAERS Safety Report 12861133 (Version 1)
Quarter: 2016Q4

REPORT INFORMATION
  Report Type: Spontaneous
  Country: US (occurrence: US)
  Receive Date: 20161019
  Receipt Date: 20161019
  Transmission Date: 20170207
  Serious: No
  Sender: FDA-Public Use
  Company Number: US-BEH-2015056490

PATIENT
  Sex: Female
  Weight: 56.7 kg

DRUGS (5)
  1. SODIUM CHLORIDE. [Concomitant]
     Active Substance: SODIUM CHLORIDE
  2. DANAZOL. [Concomitant]
     Active Substance: DANAZOL
  3. EPINEPHERINE [Concomitant]
     Active Substance: EPINEPHRINE
  4. CLARITIN [Concomitant]
     Active Substance: LORATADINE
  5. BERINERT [Suspect]
     Active Substance: HUMAN C1-ESTERASE INHIBITOR
     Indication: HEREDITARY ANGIOEDEMA
     Dosage: AS NEEDED
     Route: 042
     Dates: start: 20141008

REACTIONS (1)
  - Infusion site extravasation [Unknown]
